FAERS Safety Report 10157013 (Version 2)
Quarter: 2014Q2

REPORT INFORMATION
  Report Type: Spontaneous
  Country: US (occurrence: US)
  Receive Date: 20140507
  Receipt Date: 20140512
  Transmission Date: 20141212
  Serious: Yes (Other)
  Sender: FDA-Public Use
  Company Number: US-BAYER-2014-066945

PATIENT
  Sex: Male

DRUGS (3)
  1. XOFIGO [Suspect]
     Indication: HORMONE-REFRACTORY PROSTATE CANCER
     Dosage: TOTAL DAILY DOSE: 50 KBQ/KG
     Route: 042
  2. XOFIGO [Suspect]
     Indication: METASTASES TO BONE
  3. ZYTIGA [Concomitant]
     Indication: PROSTATE CANCER

REACTIONS (1)
  - Convulsion [None]
